FAERS Safety Report 5520443-2 (Version None)
Quarter: 2007Q4

REPORT INFORMATION
  Report Type: 
  Country: None (occurrence: None)
  Receive Date: 20071119
  Receipt Date: 20071112
  Transmission Date: 20080405
  Serious: Yes (Other)
  Sender: FDA-Public Use
  Company Number: PHEH2007US14735

PATIENT
  Sex: Female

DRUGS (1)
  1. FEMARA [Suspect]
     Route: 065

REACTIONS (4)
  - ARTHRALGIA [None]
  - MYALGIA [None]
  - NIGHT BLINDNESS [None]
  - VISUAL ACUITY REDUCED [None]
